FAERS Safety Report 9345579 (Version 2)
Quarter: 2013Q2

REPORT INFORMATION
  Report Type: Spontaneous
  Country: US (occurrence: US)
  Receive Date: 20130613
  Receipt Date: 20130618
  Transmission Date: 20140414
  Serious: Yes (Other)
  Sender: FDA-Public Use
  Company Number: US-RB-054974-13

PATIENT
  Age: 71 Year
  Sex: Male

DRUGS (2)
  1. LANACANE FIRST AID SPRAY (BENZOCAINE) [Suspect]
     Indication: PAIN
     Dosage: 1 SPRAY
     Route: 061
     Dates: start: 20130524
  2. LANACANE FIRST AID SPRAY (BENZETHONIUM CHLORIDE) [Suspect]

REACTIONS (1)
  - Deafness [Recovered/Resolved]
